FAERS Safety Report 9851203 (Version 2)
Quarter: 2014Q1

REPORT INFORMATION
  Report Type: Spontaneous
  Country: US (occurrence: US)
  Receive Date: 20140128
  Receipt Date: 20140130
  Transmission Date: 20141002
  Serious: Yes (Other)
  Sender: FDA-Public Use
  Company Number: US-B.I. PHARMACEUTICALS,INC./RIDGEFIELD-2014-BI-02777BP

PATIENT
  Age: 65 Year
  Sex: Female

DRUGS (1)
  1. SPIRIVA [Suspect]
     Dosage: 18 MCG
     Route: 055
     Dates: start: 201103

REACTIONS (4)
  - Head injury [Recovered/Resolved]
  - Product quality issue [Recovered/Resolved]
  - Convulsion [Recovered/Resolved]
  - Fall [Recovered/Resolved]
